FAERS Safety Report 25811745 (Version 1)
Quarter: 2025Q3

REPORT INFORMATION
  Report Type: Report from Study
  Country: CA (occurrence: CA)
  Receive Date: 20250917
  Receipt Date: 20250917
  Transmission Date: 20251021
  Serious: Yes (Other)
  Sender: CELLTRION
  Company Number: CA-CELLTRION INC.-2025CA032827

PATIENT

DRUGS (2)
  1. ADALIMUMAB [Suspect]
     Active Substance: ADALIMUMAB
     Indication: Crohn^s disease
     Dosage: 40.0 MILLIGRAM, 1 EVERY 2 WEEKS
  2. ADALIMUMAB [Suspect]
     Active Substance: ADALIMUMAB
     Dosage: 40.0 MILLIGRAM, 1 EVERY 2 WEEKS

REACTIONS (5)
  - Oral disorder [Recovered/Resolved]
  - Palpitations [Recovered/Resolved]
  - Cardiac flutter [Recovered/Resolved]
  - Extrasystoles [Recovered/Resolved]
  - Hypertension [Recovered/Resolved]
